FAERS Safety Report 12802274 (Version 1)
Quarter: 2016Q3

REPORT INFORMATION
  Report Type: Spontaneous
  Country: US (occurrence: US)
  Receive Date: 20160930
  Receipt Date: 20160930
  Transmission Date: 20161109
  Serious: No
  Sender: FDA-Public Use
  Company Number: None

PATIENT
  Age: 69 Year
  Sex: Female
  Weight: 76.5 kg

DRUGS (4)
  1. BIOTE NOT SPECIFIED [Suspect]
     Active Substance: ESTROGENS\TESTOSTERONE
     Indication: FEMALE SEX HORMONE LEVEL ABNORMAL
     Route: 030
     Dates: start: 20160620
  2. CALCIUM [Concomitant]
     Active Substance: CALCIUM
  3. OSREO BY-FLEX [Concomitant]
  4. CRESTOR [Concomitant]
     Active Substance: ROSUVASTATIN CALCIUM

REACTIONS (5)
  - Breast tenderness [None]
  - Menstrual disorder [None]
  - Abdominal pain [None]
  - Back pain [None]
  - Discomfort [None]

NARRATIVE: CASE EVENT DATE: 20160620
